FAERS Safety Report 10224336 (Version 1)
Quarter: 2014Q2

REPORT INFORMATION
  Report Type: Spontaneous
  Country: US (occurrence: US)
  Receive Date: 20140609
  Receipt Date: 20140609
  Transmission Date: 20141212
  Serious: No
  Sender: FDA-Public Use
  Company Number: US-PFIZER INC-2014156717

PATIENT
  Age: 65 Year
  Sex: Female
  Weight: 59.41 kg

DRUGS (13)
  1. ALPRAZOLAM [Suspect]
     Indication: ANXIETY
     Dosage: 1 MG, 1X/DAY
  2. METHOTREXATE [Suspect]
     Indication: ARTHRITIS
     Dosage: 7.5 MG (2.5 MG THREE TABLETS), ONCE A WEEK
     Route: 048
  3. PREMARIN [Suspect]
     Indication: HORMONE REPLACEMENT THERAPY
     Dosage: 6.25 MG, 1X/DAY
  4. LISINOPRIL [Suspect]
     Indication: HYPERTENSION
     Dosage: 10 MG, 1X/DAY
  5. LEVOTHYROXINE SODIUM [Suspect]
     Indication: HYPOTHYROIDISM
     Dosage: 75 UG, 1X/DAY
     Route: 048
  6. FOLIC ACID [Suspect]
     Dosage: 1 MG, 6X/WEEK
  7. LORATADINE [Suspect]
     Indication: HYPERSENSITIVITY
     Dosage: 10 MG, 1X/DAY
  8. BACLOFEN [Suspect]
     Indication: MUSCLE SPASMS
     Dosage: 10 MG, 4X/DAY
  9. CYMBALTA [Suspect]
     Indication: PAIN
     Dosage: 60 MG, 1X/DAY
  10. NIFEDICAL XL [Suspect]
     Indication: CARDIAC DISORDER
     Dosage: 30 MG, 1X/DAY
     Route: 048
  11. TEMAZEPAM [Suspect]
     Dosage: 30 MG, AS NEEDED
     Route: 048
  12. DOXOFYLLINE [Suspect]
     Indication: CARDIOVASCULAR DISORDER
     Dosage: 400 MG, 2X/DAY
     Route: 048
  13. OXYCODONE [Suspect]
     Indication: PAIN
     Dosage: 15 MG, 6X/DAY

REACTIONS (1)
  - Gastrooesophageal reflux disease [Unknown]
